FAERS Safety Report 12100910 (Version 1)
Quarter: 2016Q1

REPORT INFORMATION
  Report Type: Spontaneous
  Country: US (occurrence: US)
  Receive Date: 20160222
  Receipt Date: 20160222
  Transmission Date: 20160526
  Serious: Yes (Hospitalization, Other)
  Sender: FDA-Public Use
  Company Number: US-BAYER-2016-029738

PATIENT
  Age: 78 Year

DRUGS (2)
  1. BAYER GENUINE ASPIRIN [Suspect]
     Active Substance: ASPIRIN
  2. APIXABAN [Concomitant]
     Active Substance: APIXABAN
     Dosage: UNK
     Dates: start: 20150501

REACTIONS (7)
  - Arrhythmia [None]
  - Gastrointestinal haemorrhage [None]
  - Gastritis [None]
  - Blood iron decreased [None]
  - Dyspnoea [None]
  - Oedema [None]
  - Fatigue [None]
